FAERS Safety Report 5163188-3 (Version None)
Quarter: 2006Q4

REPORT INFORMATION
  Report Type: 
  Country: None (occurrence: None)
  Receive Date: 20061204
  Receipt Date: 20061120
  Transmission Date: 20070319
  Serious: Yes (Other)
  Sender: FDA-Public Use
  Company Number: US-JNJFOC-20061105973

PATIENT
  Age: 27 Year
  Sex: Female

DRUGS (5)
  1. TOPAMAX [Suspect]
     Indication: MIGRAINE
     Route: 048
  2. RELPAX [Concomitant]
     Indication: MIGRAINE
     Dosage: USED THROUGHOUT PREGNANCY
  3. PINDOLOL [Concomitant]
     Indication: MIGRAINE
     Dosage: THROUGHOUT PREGNANCY
  4. ZOFRAN [Concomitant]
     Indication: NAUSEA
     Dosage: BEGINNING OF PREGNANCY
  5. REGLAN [Concomitant]
     Indication: NAUSEA
     Dosage: USED IN THE BEGINNING OF PREGNANCY

REACTIONS (2)
  - CAESAREAN SECTION [None]
  - DRUG EXPOSURE DURING PREGNANCY [None]
